FAERS Safety Report 8025273-8 (Version None)
Quarter: 2012Q1

REPORT INFORMATION
  Report Type: 
  Country: None (occurrence: None)
  Receive Date: 20120105
  Receipt Date: 20111109
  Transmission Date: 20120608
  Serious: Yes (Other)
  Sender: FDA-Public Use
  Company Number: SE-ROCHE-800965

PATIENT
  Age: 67 Year
  Sex: Female
  Weight: 64.2 kg

DRUGS (3)
  1. VEMURAFENIB [Suspect]
     Indication: METASTATIC MALIGNANT MELANOMA
     Route: 048
  2. METOPROLOL SUCCINATE [Concomitant]
  3. FELODIPINE [Concomitant]

REACTIONS (2)
  - SKIN ULCER [None]
  - SQUAMOUS CELL CARCINOMA OF SKIN [None]
